FAERS Safety Report 8367125-X (Version None)
Quarter: 2012Q1

REPORT INFORMATION
  Report Type: 
  Country: None (occurrence: None)
  Receive Date: 20120323
  Receipt Date: 20110727
  Transmission Date: 20120608
  Serious: Yes (Other)
  Sender: FDA-Public Use
  Company Number: 163-21880-11073326

PATIENT
  Age: 79 Year
  Sex: Female
  Weight: 60.3284 kg

DRUGS (12)
  1. DEXAMETHASONE [Concomitant]
  2. IRON (IRON) [Concomitant]
  3. POTASSIUM CHLORIDE [Concomitant]
  4. REVLIMID [Suspect]
     Indication: MULTIPLE MYELOMA
     Dosage: 25 MG, 1 IN 1 D, PO; 15 MG, 1 IN 1 D, PO; 10 MG, 1 IN 1 D, PO; 5 MG, QD X21 DAYS,PO
     Route: 048
     Dates: start: 20110701
  5. REVLIMID [Suspect]
     Indication: MULTIPLE MYELOMA
     Dosage: 25 MG, 1 IN 1 D, PO; 15 MG, 1 IN 1 D, PO; 10 MG, 1 IN 1 D, PO; 5 MG, QD X21 DAYS,PO
     Route: 048
     Dates: start: 20090601, end: 20090101
  6. REVLIMID [Suspect]
     Indication: MULTIPLE MYELOMA
     Dosage: 25 MG, 1 IN 1 D, PO; 15 MG, 1 IN 1 D, PO; 10 MG, 1 IN 1 D, PO; 5 MG, QD X21 DAYS,PO
     Route: 048
     Dates: start: 20081101, end: 20090101
  7. REVLIMID [Suspect]
     Indication: MULTIPLE MYELOMA
     Dosage: 25 MG, 1 IN 1 D, PO; 15 MG, 1 IN 1 D, PO; 10 MG, 1 IN 1 D, PO; 5 MG, QD X21 DAYS,PO
     Route: 048
     Dates: start: 20090901, end: 20110101
  8. CALCIUM CARBONATE [Concomitant]
  9. ASCORBIC ACID [Concomitant]
  10. PEPCID [Concomitant]
  11. SIMVASTATIN [Concomitant]
  12. TRIAM/HCTZ (DYAZIDE) [Concomitant]

REACTIONS (1)
  - RENAL IMPAIRMENT [None]
